FAERS Safety Report 25117494 (Version 1)
Quarter: 2025Q1

REPORT INFORMATION
  Report Type: Spontaneous
  Country: US (occurrence: US)
  Receive Date: 20250325
  Receipt Date: 20250325
  Transmission Date: 20250408
  Serious: Yes (Other)
  Sender: SANOFI AVENTIS
  Company Number: US-SA-2025SA084425

PATIENT
  Sex: Male
  Weight: 25 kg

DRUGS (1)
  1. DUPIXENT [Suspect]
     Active Substance: DUPILUMAB
     Indication: Asthma
     Route: 058
     Dates: start: 20240613

REACTIONS (6)
  - Blindness [Unknown]
  - Vision blurred [Unknown]
  - Eye pain [Unknown]
  - Photophobia [Unknown]
  - Migraine [Unknown]
  - Multiple allergies [Unknown]

NARRATIVE: CASE EVENT DATE: 20240101
